FAERS Safety Report 5229280-X (Version None)
Quarter: 2007Q1

REPORT INFORMATION
  Report Type: 
  Country: None (occurrence: None)
  Receive Date: 20061201
  Receipt Date: 20060808
  Transmission Date: 20070707
  Serious: No
  Sender: FDA-Public Use
  Company Number: US200608001838

PATIENT
  Sex: Female

DRUGS (10)
  1. CYMBALTA [Suspect]
     Indication: NEURALGIA
     Dosage: 120 MG, DAY (1/D)
     Dates: start: 20040101
  2. NAPROXEN [Concomitant]
  3. ALTACE [Concomitant]
  4. POTASSIUM (POTASSIUM) [Concomitant]
  5. HYDROCHLOROTHIAZIDE [Concomitant]
  6. ALLEGRA [Concomitant]
  7. WELCHOL [Concomitant]
  8. PREVACID [Concomitant]
  9. ANTIVERT (MECLOZINE HYDROCHLORIDE) [Concomitant]
  10. ZANAFLEX [Concomitant]

REACTIONS (11)
  - BODY TEMPERATURE INCREASED [None]
  - CHILLS [None]
  - FATIGUE [None]
  - HALLUCINATION, AUDITORY [None]
  - HYPERHIDROSIS [None]
  - INFLUENZA LIKE ILLNESS [None]
  - INSOMNIA [None]
  - MYALGIA [None]
  - PAIN [None]
  - PSYCHOMOTOR HYPERACTIVITY [None]
  - SINUSITIS [None]
